FAERS Safety Report 24421850 (Version 2)
Quarter: 2024Q4

REPORT INFORMATION
  Report Type: Spontaneous
  Country: FR (occurrence: FR)
  Receive Date: 20241010
  Receipt Date: 20241021
  Transmission Date: 20250115
  Serious: Yes (Life-Threatening, Hospitalization, Other)
  Sender: SANOFI AVENTIS
  Company Number: None

PATIENT
  Age: 18 Year
  Sex: Female
  Weight: 55 kg

DRUGS (19)
  1. DEXAMETHASONE SODIUM PHOSPHATE [Suspect]
     Active Substance: DEXAMETHASONE SODIUM PHOSPHATE
     Indication: Hodgkin^s disease nodular sclerosis stage III
     Dosage: 40 MG, QCY
     Route: 048
     Dates: start: 20240429, end: 20240628
  2. DEXAMETHASONE SODIUM PHOSPHATE [Suspect]
     Active Substance: DEXAMETHASONE SODIUM PHOSPHATE
     Indication: Hodgkin^s disease stage III
  3. OXALIPLATIN [Suspect]
     Active Substance: OXALIPLATIN
     Indication: Hodgkin^s disease nodular sclerosis stage III
     Dosage: 205 MG, QCY
     Route: 042
     Dates: start: 20240429, end: 20240625
  4. BLEOMYCIN SULFATE [Suspect]
     Active Substance: BLEOMYCIN SULFATE
     Indication: Hodgkin^s disease nodular sclerosis stage III
     Dosage: 57.9 MG
     Route: 042
     Dates: start: 20230512, end: 20230719
  5. PREDNISONE [Suspect]
     Active Substance: PREDNISONE
     Indication: Hodgkin^s disease nodular sclerosis stage III
     Dosage: UNK
  6. ETOPOSIDE PHOSPHATE [Suspect]
     Active Substance: ETOPOSIDE PHOSPHATE
     Indication: Hodgkin^s disease nodular sclerosis stage III
     Dosage: 290 MG, QCY
     Route: 042
     Dates: start: 20230505, end: 20230830
  7. DOXORUBICIN HYDROCHLORIDE [Suspect]
     Active Substance: DOXORUBICIN HYDROCHLORIDE
     Indication: Hodgkin^s disease nodular sclerosis stage III
     Dosage: 52 MG, QCY
     Route: 042
     Dates: start: 20230505, end: 20240216
  8. CYCLOPHOSPHAMIDE [Suspect]
     Active Substance: CYCLOPHOSPHAMIDE
     Indication: Hodgkin^s disease nodular sclerosis stage III
     Dosage: 1800 MG, QCY
     Route: 042
     Dates: start: 20230505, end: 20230828
  9. VINCRISTINE SULFATE [Suspect]
     Active Substance: VINCRISTINE SULFATE
     Indication: Hodgkin^s disease nodular sclerosis stage III
     Dosage: 1.3 MG, QCY
     Route: 042
     Dates: start: 20230512, end: 20230904
  10. CYTARABINE [Suspect]
     Active Substance: CYTARABINE
     Indication: Hodgkin^s disease nodular sclerosis stage III
     Dosage: 3200 MG, QCY (19100 MG)
     Route: 042
     Dates: start: 20240430, end: 20240626
  11. PROCARBAZINE [Suspect]
     Active Substance: PROCARBAZINE
     Indication: Hodgkin^s disease stage III
     Dosage: UNK
  12. ADCETRIS [Suspect]
     Active Substance: BRENTUXIMAB VEDOTIN
     Indication: Hodgkin^s disease nodular sclerosis stage III
     Dosage: 104.4 MG, QCY
     Route: 042
     Dates: start: 20240429, end: 20240625
  13. ADCETRIS [Suspect]
     Active Substance: BRENTUXIMAB VEDOTIN
     Indication: Hodgkin^s disease stage III
  14. KEYTRUDA [Suspect]
     Active Substance: PEMBROLIZUMAB
     Indication: Hodgkin^s disease nodular sclerosis stage III
     Dosage: 200 MG, QCY
     Route: 042
     Dates: start: 20240119, end: 20240402
  15. NAVELBINE [Suspect]
     Active Substance: VINORELBINE TARTRATE
     Indication: Hodgkin^s disease nodular sclerosis stage III
     Dosage: 31.6 MG, QCY
     Route: 042
     Dates: start: 20240119, end: 20240216
  16. GEMCITABINE [Suspect]
     Active Substance: GEMCITABINE
     Indication: Hodgkin^s disease nodular sclerosis stage III
     Dosage: 1600 MG, QCY
     Route: 042
     Dates: start: 20240119, end: 20240216
  17. CARMUSTINE [Suspect]
     Active Substance: CARMUSTINE
     Indication: Hodgkin^s disease stage III
     Dosage: UNK
  18. MELPHALAN [Suspect]
     Active Substance: MELPHALAN
     Indication: Hodgkin^s disease stage III
     Dosage: UNK
  19. DOXORUBICIN HYDROCHLORIDE [Suspect]
     Active Substance: DOXORUBICIN HYDROCHLORIDE
     Indication: Hodgkin^s disease stage III
     Dosage: 52 MG, QCY (DOSE TOTALE=403 MG)
     Route: 042
     Dates: start: 20230505, end: 20240216

REACTIONS (3)
  - Condition aggravated [Recovered/Resolved]
  - Cardiac failure congestive [Recovered/Resolved]
  - Off label use [Unknown]

NARRATIVE: CASE EVENT DATE: 20230505
